FAERS Safety Report 8357519-0 (Version None)
Quarter: 2012Q2

REPORT INFORMATION
  Report Type: 
  Country: None (occurrence: None)
  Receive Date: 20120514
  Receipt Date: 20120502
  Transmission Date: 20120825
  Serious: Yes (Hospitalization)
  Sender: FDA-Public Use
  Company Number: US-ACTELION-A-US2012-64221

PATIENT

DRUGS (3)
  1. ADCIRCA [Concomitant]
  2. COUMADIN [Suspect]
  3. TRACLEER [Suspect]
     Indication: PULMONARY ARTERIAL HYPERTENSION
     Dosage: UNK
     Route: 048
     Dates: start: 20110721

REACTIONS (4)
  - COLONOSCOPY [None]
  - GASTROINTESTINAL HAEMORRHAGE [None]
  - COLONIC POLYP [None]
  - HAEMOGLOBIN DECREASED [None]
